FAERS Safety Report 11199252 (Version 3)
Quarter: 2015Q4

REPORT INFORMATION
  Report Type: Spontaneous
  Country: US (occurrence: US)
  Receive Date: 20150618
  Receipt Date: 20151102
  Transmission Date: 20160304
  Serious: Yes (Hospitalization)
  Sender: FDA-Public Use
  Company Number: US-PFIZER INC-2015199037

PATIENT
  Age: 72 Year
  Sex: Male
  Weight: 126 kg

DRUGS (28)
  1. COUMADIN [Concomitant]
     Active Substance: WARFARIN SODIUM
     Dosage: 4 MG, DAILY (PM) AS DIRECTED
     Route: 048
  2. NEXIUM [Concomitant]
     Active Substance: ESOMEPRAZOLE MAGNESIUM
     Dosage: 22.3 MG, DAILY (PM)
  3. CENTRUM SILVER [Concomitant]
     Active Substance: MINERALS\VITAMINS
     Dosage: 1 DF, DAILY (PM)
     Route: 048
  4. VENTOLIN HFA [Concomitant]
     Active Substance: ALBUTEROL SULFATE
     Dosage: 90 ?G, EVERY 4 HRS (INHALE 2 INHALATIONS INTO THE LUNGS EVERY 4 (FOUR) HOURS AS NEEDED)
     Route: 055
  5. ALTACE [Concomitant]
     Active Substance: RAMIPRIL
     Dosage: 10 MG, (AM+PM) (TAKE 20 MG IN AM, 10 MG IN PM)
     Route: 048
  6. ZOCOR [Concomitant]
     Active Substance: SIMVASTATIN
     Dosage: 10 MG, DAILY (PM, NIGHTLY)
     Route: 048
  7. ROCALTROL [Concomitant]
     Active Substance: CALCITRIOL
     Dosage: 0.25 ?G, DAILY
     Route: 048
  8. COQ 10 [Concomitant]
     Active Substance: UBIDECARENONE
     Dosage: 10 MG, DAILY
     Route: 048
  9. INLYTA [Suspect]
     Active Substance: AXITINIB
     Indication: RENAL CANCER METASTATIC
     Dosage: 7 MG, 2X/DAY (AM+PM)
     Route: 048
     Dates: end: 20150527
  10. ROCALTROL [Concomitant]
     Active Substance: CALCITRIOL
     Dosage: 0.25 MG, DAILY (AM)
  11. ACIDOPHILUS [Concomitant]
     Active Substance: LACTOBACILLUS ACIDOPHILUS
     Dosage: 10 MG, DAILY (PM)
  12. COQ 10 [Concomitant]
     Active Substance: UBIDECARENONE
     Dosage: 200 MG, DAILY (PM)
  13. TRIAMCINOLONE [Concomitant]
     Active Substance: TRIAMCINOLONE
     Dosage: 0.1 % APPLY 1 APPLICATION TOPICALLY ONCE DAILY AS NEEDED
     Route: 061
  14. NORVASC [Suspect]
     Active Substance: AMLODIPINE BESYLATE
     Dosage: 10 MG, DAILY (PM) (NIGHTLY)
     Route: 048
  15. FLOMAX [Concomitant]
     Active Substance: TAMSULOSIN HYDROCHLORIDE
     Dosage: 0.4 MG, 2X/DAY (AM+PM)
     Route: 048
  16. ALPRAZOLAM. [Concomitant]
     Active Substance: ALPRAZOLAM
     Dosage: 0.5 MG, 2X/DAY (AM+PM)
  17. NEXIUM [Concomitant]
     Active Substance: ESOMEPRAZOLE MAGNESIUM
     Dosage: 20 MG, 1X/DAY (TAKE 20 MG BY MOUTH EVERY EVENING, TAKES RX STRENGTH NEXIUM IN THE MORNING)
     Route: 048
  18. COREG [Concomitant]
     Active Substance: CARVEDILOL
     Dosage: 12.5 MG, 2X/DAY (AM+PM)
  19. TRIAMCINOLONE [Concomitant]
     Active Substance: TRIAMCINOLONE
     Dosage: UNK, 2X/DAY (PM)
  20. XANAX [Suspect]
     Active Substance: ALPRAZOLAM
     Dosage: 0.5 MG, 2X/DAY (2(TWO) TIMES DAILY) WITH MEALS
     Route: 048
  21. ZYRTEC [Suspect]
     Active Substance: CETIRIZINE HYDROCHLORIDE
     Dosage: 10 MG, DAILY (TAKE 10 MG BY MOUTH ONCE DAILY AS NEEDED)
     Route: 048
  22. LIDEX [Concomitant]
     Active Substance: FLUOCINONIDE
     Dosage: UNK, 1X/DAY (0.05 % CREAM APPLY TOPICALLY ONCE DAILY AS NEEDED)
     Route: 061
  23. INLYTA [Suspect]
     Active Substance: AXITINIB
     Dosage: 5 MG, TAKE 2 TABLETS (10 MG TOTAL) EVERY 12 (TWELVE) HOURS
     Route: 048
  24. NEXIUM [Concomitant]
     Active Substance: ESOMEPRAZOLE MAGNESIUM
     Dosage: 40 MG, DAILY (AM)
  25. NEXIUM [Concomitant]
     Active Substance: ESOMEPRAZOLE MAGNESIUM
     Dosage: 40 MG, 1X/DAY (TAKE 40 MG BY MOUTH NIGHTLY)
     Route: 048
  26. VESICARE [Concomitant]
     Active Substance: SOLIFENACIN SUCCINATE
     Dosage: 10 MG, DAILY
     Route: 048
  27. FLONASE [Concomitant]
     Active Substance: FLUTICASONE PROPIONATE
     Dosage: 50 ?G, DAILY (AM) (PLACE 1 SPRAY INTO BOTH NOSTRILS ONCE DAILY)
     Route: 055
  28. COREG [Concomitant]
     Active Substance: CARVEDILOL
     Dosage: 25 MG, 2X/DAY (TAKE 1 TABLET (25 MG TOTAL) BY MOUTH 2 (TWO) TIMES DAILY WITH MEALS)
     Route: 048

REACTIONS (1)
  - Cystitis glandularis [Unknown]
